FAERS Safety Report 5992880-3 (Version None)
Quarter: 2008Q4

REPORT INFORMATION
  Report Type: 
  Country: None (occurrence: None)
  Receive Date: 20081212
  Receipt Date: 20081107
  Transmission Date: 20090506
  Serious: No
  Sender: FDA-Public Use
  Company Number: US-BAYER-200838110NA

PATIENT
  Age: 33 Year
  Sex: Male
  Weight: 73 kg

DRUGS (1)
  1. MAGNEVIST [Suspect]
     Indication: CONVULSION
     Dosage: TOTAL DAILY DOSE: 15 ML
     Route: 042
     Dates: start: 20081107, end: 20081107

REACTIONS (1)
  - URTICARIA [None]
